FAERS Safety Report 25249529 (Version 1)
Quarter: 2025Q2

REPORT INFORMATION
  Report Type: Spontaneous
  Country: US (occurrence: US)
  Receive Date: 20250429
  Receipt Date: 20250429
  Transmission Date: 20250716
  Serious: Yes (Other)
  Sender: TEVA
  Company Number: US-TEVA-VS-3324528

PATIENT
  Age: 68 Year
  Sex: Female

DRUGS (2)
  1. AJOVY [Suspect]
     Active Substance: FREMANEZUMAB-VFRM
     Indication: Migraine
     Dosage: FORM STRENGTH: 225 MG/1.5 ML
     Route: 065
     Dates: end: 202412
  2. AJOVY [Suspect]
     Active Substance: FREMANEZUMAB-VFRM

REACTIONS (3)
  - Multiple sclerosis [Unknown]
  - Migraine [Unknown]
  - Product use issue [Unknown]

NARRATIVE: CASE EVENT DATE: 20241201
